FAERS Safety Report 9942443 (Version 1)
Quarter: 2014Q1

REPORT INFORMATION
  Report Type: Report from Study
  Country: US (occurrence: US)
  Receive Date: 20140303
  Receipt Date: 20140303
  Transmission Date: 20141002
  Serious: No
  Sender: FDA-Public Use
  Company Number: US-ABBVIE-13P-163-1043969-00

PATIENT
  Age: 42 Year
  Sex: Male

DRUGS (7)
  1. HUMIRA [Suspect]
     Indication: COLITIS ULCERATIVE
     Dates: start: 20121220, end: 20121220
  2. HUMIRA [Suspect]
     Dates: start: 20130103, end: 20130103
  3. HUMIRA [Suspect]
  4. ASACOL [Concomitant]
  5. FOLIC ACID [Concomitant]
     Dosage: 800 MCG DAILY
  6. PREDNISONE [Concomitant]
  7. PRILOSEC [Concomitant]
     Dosage: 20 MG DAILY

REACTIONS (1)
  - Blood iron decreased [Not Recovered/Not Resolved]
